FAERS Safety Report 21540517 (Version 3)
Quarter: 2023Q1

REPORT INFORMATION
  Report Type: Report from Study
  Country: JP (occurrence: JP)
  Receive Date: 20221102
  Receipt Date: 20230328
  Transmission Date: 20230418
  Serious: Yes (Life-Threatening)
  Sender: FDA-Public Use
  Company Number: JP-SA-2022SA449057

PATIENT
  Age: 16 Year
  Sex: Male

DRUGS (8)
  1. AVALGLUCOSIDASE ALFA [Suspect]
     Active Substance: AVALGLUCOSIDASE ALFA
     Indication: Glycogen storage disease type II
     Dosage: 150 ML, 1X
     Route: 041
     Dates: start: 20220719, end: 20220719
  2. AVALGLUCOSIDASE ALFA [Suspect]
     Active Substance: AVALGLUCOSIDASE ALFA
     Dosage: 300 ML, QOW
     Route: 041
     Dates: start: 20220104, end: 20220118
  3. AVALGLUCOSIDASE ALFA [Suspect]
     Active Substance: AVALGLUCOSIDASE ALFA
     Dosage: 300 ML, 1X
     Route: 041
     Dates: start: 20220216, end: 20220216
  4. AVALGLUCOSIDASE ALFA [Suspect]
     Active Substance: AVALGLUCOSIDASE ALFA
     Dosage: 300 ML, QOW
     Route: 041
     Dates: start: 20220301, end: 20220329
  5. AVALGLUCOSIDASE ALFA [Suspect]
     Active Substance: AVALGLUCOSIDASE ALFA
     Dosage: 300 ML, 1X
     Route: 041
     Dates: start: 20220413, end: 20220413
  6. AVALGLUCOSIDASE ALFA [Suspect]
     Active Substance: AVALGLUCOSIDASE ALFA
     Dosage: 300 ML, QOW
     Route: 041
     Dates: start: 20220426, end: 20220621
  7. HYDROXYZINE PAMOATE [Concomitant]
     Active Substance: HYDROXYZINE PAMOATE
     Indication: Prophylaxis
     Dosage: UNK
     Route: 065
  8. HYDROXYZINE PAMOATE [Concomitant]
     Active Substance: HYDROXYZINE PAMOATE
     Indication: Infusion related reaction
     Dosage: PRETREATMENT: 12.5 MG, AT ONSET OF ADVERSE REACTION: 25 MG
     Route: 065
     Dates: start: 20220719, end: 20220719

REACTIONS (1)
  - Infusion related reaction [Recovering/Resolving]

NARRATIVE: CASE EVENT DATE: 20220719
